FAERS Safety Report 13270478 (Version 3)
Quarter: 2017Q1

REPORT INFORMATION
  Report Type: Spontaneous
  Country: US (occurrence: US)
  Receive Date: 20170224
  Receipt Date: 20170323
  Transmission Date: 20170428
  Serious: Yes (Other)
  Sender: FDA-Public Use
  Company Number: US-TEVA-742847USA

PATIENT
  Age: 69 Year
  Sex: Male

DRUGS (2)
  1. TEVADAPTOR DEVICE [Suspect]
     Active Substance: DEVICE
     Route: 042
  2. FLUOROURACIL. [Suspect]
     Active Substance: FLUOROURACIL
     Dosage: 10 MG/HR- THIRD CYCLE
     Route: 042
     Dates: start: 20161222

REACTIONS (5)
  - Skin irritation [Recovered/Resolved]
  - Exposure to toxic agent [Unknown]
  - Emotional distress [Unknown]
  - Device breakage [Unknown]
  - Paraesthesia [Unknown]

NARRATIVE: CASE EVENT DATE: 201702
